FAERS Safety Report 9956882 (Version 1)
Quarter: 2014Q1

REPORT INFORMATION
  Report Type: Report from Study
  Country: US (occurrence: US)
  Receive Date: 20140304
  Receipt Date: 20140304
  Transmission Date: 20141002
  Serious: No
  Sender: FDA-Public Use
  Company Number: US-ABBVIE-13P-163-1099244-00

PATIENT
  Age: 59 Year
  Sex: Male

DRUGS (12)
  1. HUMIRA [Suspect]
     Indication: RHEUMATOID ARTHRITIS
     Dates: start: 201304
  2. GABAPENTIN [Concomitant]
     Indication: NECK PAIN
  3. ALOPURINOL [Concomitant]
     Indication: GOUT
  4. AMLODIPINE [Concomitant]
     Indication: HYPERTENSION
  5. DICYCLOMINE [Concomitant]
     Indication: GASTRIC DISORDER
  6. DICYCLOMINE [Concomitant]
     Indication: CROHN^S DISEASE
  7. CYCLOBENZAPRINE [Concomitant]
     Indication: MUSCLE SPASMS
  8. VENLAFAXINE [Concomitant]
     Indication: PAIN
  9. VENLAFAXINE [Concomitant]
     Indication: ANXIETY
  10. PANTOPRAZOLE [Concomitant]
     Indication: GASTRIC DISORDER
     Dosage: 30 MINUTES BEFORE MEALS
  11. FOLIC ACID [Concomitant]
     Indication: PRODUCT USED FOR UNKNOWN INDICATION
  12. LACTOBACILLUS ACIDOPHILUS [Concomitant]
     Indication: PROBIOTIC THERAPY

REACTIONS (1)
  - Injection site pain [Recovered/Resolved]
